FAERS Safety Report 7704936-5 (Version None)
Quarter: 2011Q3

REPORT INFORMATION
  Report Type: 
  Country: None (occurrence: None)
  Receive Date: 20110823
  Receipt Date: 20110819
  Transmission Date: 20111222
  Serious: No
  Sender: FDA-Public Use
  Company Number: US-PFIZER INC-2011192637

PATIENT
  Sex: Female

DRUGS (2)
  1. DEPO-PROVERA [Suspect]
     Indication: CONTRACEPTION
     Dosage: UNK
  2. LEUPROLIDE ACETATE [Suspect]
     Indication: CONTRACEPTION
     Dosage: UNK

REACTIONS (1)
  - VISION BLURRED [None]
